FAERS Safety Report 9694801 (Version 4)
Quarter: 2013Q4

REPORT INFORMATION
  Report Type: Report from Study
  Country: AT (occurrence: AT)
  Receive Date: 20131119
  Receipt Date: 20131206
  Transmission Date: 20140711
  Serious: Yes (Death, Hospitalization)
  Sender: FDA-Public Use
  Company Number: AT-PFIZER INC-2013318521

PATIENT
  Age: 72 Year
  Sex: Male
  Weight: 68 kg

DRUGS (11)
  1. IRINOTECAN HCL [Suspect]
     Indication: COLORECTAL CANCER METASTATIC
     Dosage: 180 MG/M2, CYCLIC
     Route: 042
     Dates: start: 20110721, end: 20131107
  2. FLUOROURACIL [Suspect]
     Indication: COLORECTAL CANCER METASTATIC
     Dosage: 400 MG/M2, SINGLE
     Route: 040
     Dates: start: 20110721, end: 20131107
  3. FLUOROURACIL [Suspect]
     Dosage: 2400 MG/M2, CYCLIC
     Route: 042
     Dates: start: 20110721, end: 20131107
  4. FOLINIC ACID [Suspect]
     Indication: COLORECTAL CANCER METASTATIC
     Dosage: 400 MG/M2, CYCLIC
     Route: 042
     Dates: start: 20110721, end: 20131107
  5. BEVACIZUMAB [Suspect]
     Indication: COLORECTAL CANCER METASTATIC
     Dosage: 5 MG/KG, CYCLIC
     Route: 042
     Dates: start: 20110721, end: 20131107
  6. DILATREND [Concomitant]
     Dosage: 25 MG, 2X/DAY
     Route: 048
  7. GLUCOPHAGE [Concomitant]
     Dosage: 850 MG, 1X/DAY
     Route: 048
     Dates: start: 2008
  8. DILTIAZEM [Concomitant]
     Dosage: 90 MG, 1X/DAY
     Route: 048
     Dates: start: 2005
  9. PANTOPRAZOL [Concomitant]
     Dosage: 40 MG, 1X/DAY
     Route: 048
     Dates: start: 20131014
  10. ENALAPRIL MALEATE W/HYDROCHLOROTIAZIDE [Concomitant]
     Dosage: UNK
     Route: 048
     Dates: start: 20131015
  11. ENALAPRIL [Concomitant]
     Dosage: 5 MG, 1X/DAY
     Route: 048
     Dates: start: 20131030

REACTIONS (1)
  - Oesophagitis [Fatal]
